FAERS Safety Report 6719952-X (Version None)
Quarter: 2010Q2

REPORT INFORMATION
  Report Type: 
  Country: None (occurrence: None)
  Receive Date: 20100511
  Receipt Date: 20100430
  Transmission Date: 20101027
  Serious: Yes (Hospitalization)
  Sender: FDA-Public Use
  Company Number: DE-ELI_LILLY_AND_COMPANY-DE201005000781

PATIENT
  Age: 70 Year
  Sex: Male

DRUGS (21)
  1. BYETTA [Suspect]
     Indication: DIABETES MELLITUS
     Dosage: 5 UG, UNKNOWN
     Route: 058
     Dates: start: 20100420, end: 20100420
  2. FOSAVANCE [Concomitant]
     Dosage: UNK, WEEKLY (1/W) (ON WEDNESDAYS)
     Route: 065
  3. MARCUMAR [Concomitant]
     Dosage: UNK, ACCORDING TO INR
     Route: 065
  4. OXYGESIC [Concomitant]
     Dosage: 20 MG, 2/D (MORNING AND EVENING)
     Route: 065
  5. MOVICOL [Concomitant]
     Dosage: UNK, 2/D ( MORNING AND EVENING)
     Route: 065
  6. HUMALOG [Concomitant]
     Dosage: UNK, ACCORDING TO BLOOD SUGAR/ SCHEME
     Route: 065
  7. SAB SIMPLEX [Concomitant]
     Dosage: 3 X 30 DEGRESS
     Route: 065
  8. DIGIMERCK [Concomitant]
     Dosage: 0.1 MG, DAILY (1/D) (MORNING)
     Route: 065
  9. KALINOR RETARD [Concomitant]
     Dosage: UNK, 2/D (MORNING AND EVENING)
     Route: 065
  10. DELIX [Concomitant]
     Dosage: 5 MG, 2/D (MORNING AND EVENING)
     Route: 065
  11. CONCOR [Concomitant]
     Dosage: 2.5 MG, 2/D (MORNING AND EVENING)
     Route: 065
  12. TORSEMIDE [Concomitant]
     Dosage: 10 MG, 4/D (TWICE IN THE MORNING AND NOON)
     Route: 065
  13. AQUAPHOR [Concomitant]
     Dosage: 10 MG, DAILY (1/D) (IN THE MORNING)
     Route: 065
  14. ZYLORIC [Concomitant]
     Dosage: 100 MG, DAILY (1/D) (IN THE EVENING)
     Route: 065
  15. BONDIOL [Concomitant]
     Dosage: 0.25 UG, DAILY (1/D) (MORNING)
  16. PANTOZOL [Concomitant]
     Dosage: 20 MG, DAILY (1/D) (EVENING)
     Route: 065
  17. CEDUR [Concomitant]
     Dosage: 400 MG, DAILY (1/D) (EVENING)
     Route: 065
  18. NEURONTIN [Concomitant]
     Dosage: 300 MG, 2/D (MORNING AND NOON)
     Route: 065
  19. LYRICA [Concomitant]
     Dosage: 50 MG, ONCE IN THE MORNING AND TWICE IN THE EVENING)
     Route: 065
  20. PREDNISOLON [Concomitant]
     Dosage: 15 MG, DAILY (1/D) (MORNING)
     Route: 065
  21. JANUVIA [Concomitant]
     Dosage: 100 MG, UNKNOWN
     Route: 065

REACTIONS (4)
  - HYPOTENSION [None]
  - OFF LABEL USE [None]
  - RASH [None]
  - TACHYCARDIA [None]
